FAERS Safety Report 22181893 (Version 1)
Quarter: 2023Q2

REPORT INFORMATION
  Report Type: Spontaneous
  Country: US (occurrence: None)
  Receive Date: 20230406
  Receipt Date: 20230406
  Transmission Date: 20230722
  Serious: Yes (Disabling, Other)
  Sender: FDA-Public Use
  Company Number: None

PATIENT
  Age: 31 Year
  Sex: Female
  Weight: 47.25 kg

DRUGS (4)
  1. SUBOXONE [Suspect]
     Active Substance: BUPRENORPHINE HYDROCHLORIDE\NALOXONE HYDROCHLORIDE
     Indication: Drug use disorder
     Dosage: OTHER QUANTITY : 1 STRIP;?FREQUENCY : TWICE A DAY;?
     Route: 060
     Dates: start: 20200305, end: 20230406
  2. LEXAPRO [Concomitant]
     Active Substance: ESCITALOPRAM OXALATE
  3. SUBOXONE STRIP [Concomitant]
  4. OMEPRAZOLE [Concomitant]
     Active Substance: OMEPRAZOLE

REACTIONS (13)
  - Periodontal disease [None]
  - Oral discomfort [None]
  - Oral pruritus [None]
  - Aphthous ulcer [None]
  - Aphthous ulcer [None]
  - Impaired healing [None]
  - Weight decreased [None]
  - Dental caries [None]
  - Tooth infection [None]
  - Tooth fracture [None]
  - Tongue blistering [None]
  - Lip blister [None]
  - Emotional distress [None]

NARRATIVE: CASE EVENT DATE: 20230104
